FAERS Safety Report 9458322 (Version 1)
Quarter: 2013Q3

REPORT INFORMATION
  Report Type: Spontaneous
  Country: BR (occurrence: BR)
  Receive Date: 20130814
  Receipt Date: 20130814
  Transmission Date: 20140515
  Serious: Yes (Hospitalization, Other)
  Sender: FDA-Public Use
  Company Number: BR-ELI_LILLY_AND_COMPANY-BR201308001948

PATIENT
  Sex: Male
  Weight: 54 kg

DRUGS (12)
  1. HUMULIN R [Suspect]
     Indication: DIABETES MELLITUS
     Dosage: 2 IU, UNKNOWN
     Route: 065
     Dates: start: 201206
  2. HUMULIN R [Suspect]
     Dosage: 4 IU, UNKNOWN
     Route: 065
     Dates: start: 201206
  3. HUMULIN R [Suspect]
     Dosage: 6 IU, UNKNOWN
     Route: 065
     Dates: start: 201206
  4. HUMULIN R [Suspect]
     Dosage: 8 IU, UNKNOWN
     Route: 065
     Dates: start: 201206
  5. OMEPRAZOLE [Concomitant]
     Dosage: 20 MG, EACH MORNING
     Route: 065
  6. CLOPIDOGREL [Concomitant]
     Indication: INFARCTION
     Dosage: 75 MG, QD
     Route: 065
  7. GLIMEPIRIDE [Concomitant]
     Indication: BLOOD GLUCOSE ABNORMAL
     Dosage: 4 MG, BID
     Route: 065
  8. METFORMIN [Concomitant]
     Indication: DIABETES MELLITUS
     Dosage: 850 MG, TID
     Route: 065
  9. ATENOLOL [Concomitant]
     Indication: BLOOD PRESSURE
     Dosage: 25 MG, BID
     Route: 065
  10. AAS [Concomitant]
     Dosage: 100 MG, QD
     Route: 065
  11. SINVASTATINA [Concomitant]
     Dosage: 40 MG, QD
     Route: 065
  12. ISOSORBID MONONITRAT [Concomitant]
     Indication: CARDIAC DISORDER
     Dosage: 40 MG, BID
     Route: 065

REACTIONS (3)
  - Cerebrovascular accident [Recovered/Resolved]
  - Hypokinesia [Recovered/Resolved]
  - Hemiplegia [Recovered/Resolved]
